FAERS Safety Report 4948367-X (Version None)
Quarter: 2006Q1

REPORT INFORMATION
  Report Type: 
  Country: None (occurrence: None)
  Receive Date: 20060313
  Receipt Date: 20060302
  Transmission Date: 20060701
  Serious: No
  Sender: FDA-Public Use
  Company Number: 06H-155-0306147-00

PATIENT
  Sex: Female

DRUGS (4)
  1. MORPHINE SULFATE INJ [Suspect]
     Indication: SPINAL ANAESTHESIA
     Dosage: 0.2 MG, INTRATHECAL
     Route: 037
  2. FENTANYL CITRATE [Suspect]
     Indication: SPINAL ANAESTHESIA
     Dosage: 20 MCG, INTRATHECAL
     Route: 037
  3. BUPIVACAINE [Suspect]
     Indication: SPINAL ANAESTHESIA
     Dosage: 2.2 ML, INTRATHECAL
     Route: 037
  4. SODIUM CHLORIDE [Concomitant]

REACTIONS (2)
  - BLOOD PRESSURE SYSTOLIC DECREASED [None]
  - HYPOTENSION [None]
